FAERS Safety Report 14627660 (Version 1)
Quarter: 2018Q1

REPORT INFORMATION
  Report Type: Spontaneous
  Country: US (occurrence: US)
  Receive Date: 20180312
  Receipt Date: 20180312
  Transmission Date: 20180509
  Serious: No
  Sender: FDA-Public Use
  Company Number: US-LUNDBECK-DKLU2044432

PATIENT
  Age: 79 Year
  Sex: Male

DRUGS (4)
  1. MIDODRINE [Suspect]
     Active Substance: MIDODRINE
     Indication: PRODUCT USED FOR UNKNOWN INDICATION
     Route: 065
  2. NORTHERA [Suspect]
     Active Substance: DROXIDOPA
     Indication: PRODUCT USED FOR UNKNOWN INDICATION
     Dosage: SCHEDULE C AND TITRATING
     Route: 048
     Dates: start: 20180123
  3. MIDODRINE [Suspect]
     Active Substance: MIDODRINE
     Route: 065
  4. NORTHERA [Suspect]
     Active Substance: DROXIDOPA
     Dosage: STARTING ON WEEK 3
     Route: 048

REACTIONS (1)
  - Hallucination [Recovering/Resolving]

NARRATIVE: CASE EVENT DATE: 201801
